FAERS Safety Report 9661239 (Version 1)
Quarter: 2013Q4

REPORT INFORMATION
  Report Type: Spontaneous
  Country: US (occurrence: None)
  Receive Date: 20131030
  Receipt Date: 20131030
  Transmission Date: 20140711
  Serious: Yes (Other)
  Sender: FDA-Public Use
  Company Number: CIO13063629

PATIENT
  Sex: Female

DRUGS (1)
  1. DAYQUIL [Suspect]
     Route: 048

REACTIONS (4)
  - Lower limb fracture [None]
  - Upper limb fracture [None]
  - Fall [None]
  - Swollen tongue [None]
